FAERS Safety Report 9155153 (Version 6)
Quarter: 2013Q3

REPORT INFORMATION
  Report Type: Spontaneous
  Country: US (occurrence: US)
  Receive Date: 20130311
  Receipt Date: 20130729
  Transmission Date: 20140515
  Serious: No
  Sender: FDA-Public Use
  Company Number: US-009507513-1303USA003792

PATIENT
  Age: 46 Year
  Sex: Female
  Weight: 113.38 kg

DRUGS (11)
  1. VICTRELIS [Suspect]
     Indication: HEPATITIS C
     Dosage: 800 MG(FOUR 200 MG CAPSULES), TID, EVERY 7 TO 9 HOURS START ON WEEK 5
     Route: 048
     Dates: start: 20130325
  2. REBETOL [Suspect]
     Indication: HEPATITIS C
     Dosage: 600 MG, BID
     Route: 048
     Dates: start: 20130223
  3. REBETOL [Suspect]
     Dosage: 600 MG, QAM
     Route: 048
     Dates: start: 2013
  4. PEGASYS [Suspect]
     Indication: HEPATITIS C
     Dosage: UNK
     Route: 058
     Dates: start: 20130223
  5. FIBERCON [Concomitant]
     Route: 048
  6. XANAX [Concomitant]
     Route: 048
  7. BENADRYL [Concomitant]
     Route: 048
  8. CITALOPRAM [Concomitant]
     Route: 048
  9. LOSARTAN POTASSIUM [Concomitant]
     Route: 048
  10. NORCO [Concomitant]
     Route: 048
  11. ALBUTEROL [Concomitant]
     Dosage: FORMULATION AER 90 MCG RF

REACTIONS (19)
  - Full blood count decreased [Unknown]
  - Dehydration [Unknown]
  - Pollakiuria [Unknown]
  - Insomnia [Unknown]
  - Fatigue [Unknown]
  - Rash [Unknown]
  - Headache [Unknown]
  - Rash [Unknown]
  - Pruritus [Unknown]
  - Red blood cell count decreased [Unknown]
  - Anaemia [Unknown]
  - Haemoglobin decreased [Unknown]
  - Fatigue [Unknown]
  - Memory impairment [Unknown]
  - Vaginal haemorrhage [Recovering/Resolving]
  - Urinary tract infection [Unknown]
  - Anaemia [Unknown]
  - Nausea [Unknown]
  - Vomiting [Unknown]
